FAERS Safety Report 12592079 (Version 1)
Quarter: 2016Q3

REPORT INFORMATION
  Report Type: Spontaneous
  Country: US (occurrence: US)
  Receive Date: 20160726
  Receipt Date: 20160726
  Transmission Date: 20161109
  Serious: No
  Sender: FDA-Public Use
  Company Number: US-UNITED THERAPEUTICS-UNT-2016-003432

PATIENT
  Sex: Male

DRUGS (1)
  1. REMODULIN [Suspect]
     Active Substance: TREPROSTINIL
     Indication: PULMONARY ARTERIAL HYPERTENSION
     Dosage: 0.018 ML, PER HOUR
     Route: 058
     Dates: start: 201602

REACTIONS (5)
  - Device dislocation [Unknown]
  - Adverse event [Unknown]
  - Nausea [Unknown]
  - Drug dose omission [Unknown]
  - Drug titration error [Unknown]

NARRATIVE: CASE EVENT DATE: 20160227
